FAERS Safety Report 8258519-1 (Version None)
Quarter: 2012Q2

REPORT INFORMATION
  Report Type: 
  Country: None (occurrence: None)
  Receive Date: 20120404
  Receipt Date: 20120402
  Transmission Date: 20120825
  Serious: Yes (Other)
  Sender: FDA-Public Use
  Company Number: FI-PFIZER INC-2011275023

PATIENT
  Age: 35 Year
  Sex: Female
  Weight: 72 kg

DRUGS (1)
  1. SYNAREL [Suspect]
     Indication: IN VITRO FERTILISATION
     Dosage: 400 UG, 2X/DAY
     Route: 045
     Dates: start: 20111007, end: 20111026

REACTIONS (2)
  - DRUG INEFFECTIVE [None]
  - HYPOACUSIS [None]
